FAERS Safety Report 7329423-8 (Version None)
Quarter: 2011Q1

REPORT INFORMATION
  Report Type: 
  Country: None (occurrence: None)
  Receive Date: 20110303
  Receipt Date: 20110225
  Transmission Date: 20110831
  Serious: Yes (Other)
  Sender: FDA-Public Use
  Company Number: US-B.I. PHARMACEUTICALS,INC./RIDGEFIELD-2011-BP-05468BP

PATIENT
  Sex: Female

DRUGS (2)
  1. COUMADIN [Concomitant]
     Indication: ATRIAL FIBRILLATION
     Dosage: 4 MG
     Route: 048
     Dates: end: 20110218
  2. PRADAXA [Suspect]
     Indication: ATRIAL FIBRILLATION
     Dosage: 300 MG
     Route: 048
     Dates: start: 20110219

REACTIONS (5)
  - RENAL FAILURE CHRONIC [None]
  - MUSCLE SPASMS [None]
  - INSOMNIA [None]
  - HEADACHE [None]
  - NASAL DISCOMFORT [None]
